FAERS Safety Report 24457177 (Version 1)
Quarter: 2024Q4

REPORT INFORMATION
  Report Type: Other
  Country: FR (occurrence: FR)
  Receive Date: 20241018
  Receipt Date: 20241018
  Transmission Date: 20250115
  Serious: Yes (Hospitalization)
  Sender: ZYDUS PHARM
  Company Number: None

PATIENT

DRUGS (2)
  1. DICLOFENAC [Suspect]
     Active Substance: DICLOFENAC
     Indication: Sciatica
     Dosage: UNK
     Route: 061
     Dates: start: 20240807
  2. NAPROXEN [Suspect]
     Active Substance: NAPROXEN
     Indication: Sciatica
     Dosage: UNK
     Route: 048
     Dates: start: 20240807

REACTIONS (1)
  - Photodermatosis [Recovered/Resolved]

NARRATIVE: CASE EVENT DATE: 20240816
